FAERS Safety Report 23800500 (Version 7)
Quarter: 2025Q2

REPORT INFORMATION
  Report Type: Report from Study
  Country: CA (occurrence: CA)
  Receive Date: 20240430
  Receipt Date: 20250423
  Transmission Date: 20250717
  Serious: Yes (Other)
  Sender: UCB
  Company Number: CA-UCBSA-2024016867

PATIENT
  Sex: Male

DRUGS (9)
  1. BIMEKIZUMAB [Suspect]
     Active Substance: BIMEKIZUMAB
     Indication: Psoriatic arthropathy
     Dosage: 160 MILLIGRAM, EV 4 WEEKS
     Route: 058
     Dates: start: 20240404
  2. BIMEKIZUMAB [Suspect]
     Active Substance: BIMEKIZUMAB
     Indication: Psoriasis
     Dosage: 160 MILLIGRAM, EV 3 WEEKS
     Route: 058
     Dates: start: 202406
  3. BIMEKIZUMAB [Suspect]
     Active Substance: BIMEKIZUMAB
     Dates: start: 20250401, end: 20250415
  4. NAPROXEN [Concomitant]
     Active Substance: NAPROXEN
     Indication: Pain
  5. CRESTOR [Concomitant]
     Active Substance: ROSUVASTATIN CALCIUM
     Indication: Product used for unknown indication
  6. VYVANSE [Concomitant]
     Active Substance: LISDEXAMFETAMINE DIMESYLATE
     Indication: Product used for unknown indication
  7. VITAMIN B12 [Concomitant]
     Active Substance: CYANOCOBALAMIN
     Indication: Product used for unknown indication
  8. VITAMIN D3 [Concomitant]
     Active Substance: CHOLECALCIFEROL
     Indication: Product used for unknown indication
  9. METHOTREXATE SODIUM [Concomitant]
     Active Substance: METHOTREXATE SODIUM
     Indication: Product used for unknown indication

REACTIONS (25)
  - Psoriatic arthropathy [Unknown]
  - Type 2 diabetes mellitus [Unknown]
  - Injection site pain [Unknown]
  - Disorientation [Unknown]
  - Insomnia [Unknown]
  - Sensory loss [Unknown]
  - Feeling of body temperature change [Unknown]
  - Feeling abnormal [Unknown]
  - Memory impairment [Unknown]
  - Aphasia [Unknown]
  - Agitation [Unknown]
  - Disturbance in attention [Unknown]
  - Injection site induration [Unknown]
  - Pain [Unknown]
  - Pain in extremity [Unknown]
  - Trigger finger [Unknown]
  - Arthralgia [Unknown]
  - Burning sensation [Unknown]
  - Gait disturbance [Unknown]
  - Injection site discharge [Unknown]
  - Impaired quality of life [Unknown]
  - Off label use [Unknown]
  - Incorrect dose administered [Unknown]
  - Inappropriate schedule of product administration [Unknown]
  - Wrong technique in product usage process [Unknown]

NARRATIVE: CASE EVENT DATE: 20240101
